FAERS Safety Report 15827727 (Version 1)
Quarter: 2019Q1

REPORT INFORMATION
  Report Type: Spontaneous
  Country: US (occurrence: US)
  Receive Date: 20190115
  Receipt Date: 20190115
  Transmission Date: 20190417
  Serious: Yes (Other)
  Sender: FDA-Public Use
  Company Number: US-ELI_LILLY_AND_COMPANY-US201901000519

PATIENT
  Age: 77 Year
  Sex: Male

DRUGS (1)
  1. EFFIENT [Suspect]
     Active Substance: PRASUGREL HYDROCHLORIDE
     Indication: CARDIAC DISORDER
     Dosage: 10 MG, DAILY
     Route: 048
     Dates: start: 20181116

REACTIONS (7)
  - Paraesthesia oral [Not Recovered/Not Resolved]
  - Gait disturbance [Unknown]
  - Angina pectoris [Unknown]
  - Arthritis [Unknown]
  - Chest pain [Not Recovered/Not Resolved]
  - Lip swelling [Not Recovered/Not Resolved]
  - Dizziness [Unknown]

NARRATIVE: CASE EVENT DATE: 20181228
